FAERS Safety Report 13344353 (Version 2)
Quarter: 2017Q1

REPORT INFORMATION
  Report Type: Spontaneous
  Country: US (occurrence: US)
  Receive Date: 20170317
  Receipt Date: 20170324
  Transmission Date: 20170428
  Serious: No
  Sender: FDA-Public Use
  Company Number: US-AMGEN-USASP2017037820

PATIENT
  Age: 70 Year
  Sex: Female

DRUGS (1)
  1. ENBREL [Suspect]
     Active Substance: ETANERCEPT
     Indication: RHEUMATOID ARTHRITIS
     Dosage: 50 MG, QWK
     Route: 058

REACTIONS (6)
  - Injection site swelling [Unknown]
  - Injection site papule [Unknown]
  - Injection site discolouration [Unknown]
  - Mouth swelling [Unknown]
  - Injection site erythema [Unknown]
  - Injection site pruritus [Unknown]
